FAERS Safety Report 16862839 (Version 1)
Quarter: 2019Q3

REPORT INFORMATION
  Report Type: Report from Study
  Country: DE (occurrence: DE)
  Receive Date: 20190927
  Receipt Date: 20190927
  Transmission Date: 20191005
  Serious: Yes (Hospitalization)
  Sender: FDA-Public Use
  Company Number: DE-VANDA PHARMACEUTICALS, INC-2019TASDE003411

PATIENT

DRUGS (3)
  1. HETLIOZ [Suspect]
     Active Substance: TASIMELTEON
     Dosage: 20 UNK, UNK
     Dates: start: 201909
  2. HETLIOZ [Suspect]
     Active Substance: TASIMELTEON
     Indication: NON-24-HOUR SLEEP-WAKE DISORDER
     Dosage: 20 MG, UNK
     Dates: start: 20170415, end: 20190905
  3. HETLIOZ [Suspect]
     Active Substance: TASIMELTEON
     Dosage: 20 MG, UNK
     Dates: start: 20190905, end: 20190917

REACTIONS (2)
  - Product dose omission [Recovered/Resolved]
  - Empyema [Unknown]

NARRATIVE: CASE EVENT DATE: 201909
